FAERS Safety Report 8453818-2 (Version None)
Quarter: 2012Q2

REPORT INFORMATION
  Report Type: 
  Country: None (occurrence: None)
  Receive Date: 20120620
  Receipt Date: 20120615
  Transmission Date: 20120825
  Serious: Yes (Other)
  Sender: FDA-Public Use
  Company Number: GXKR2012DE002001

PATIENT

DRUGS (1)
  1. ZOLEDRONOC ACID [Suspect]
     Route: 042
     Dates: start: 20060101

REACTIONS (1)
  - OSTEONECROSIS OF JAW [None]
